FAERS Safety Report 5331899-2 (Version None)
Quarter: 2007Q2

REPORT INFORMATION
  Report Type: 
  Country: None (occurrence: None)
  Receive Date: 20070306
  Receipt Date: 20051121
  Transmission Date: 20071010
  Serious: Yes (Hospitalization)
  Sender: FDA-Public Use
  Company Number: A03200503850

PATIENT
  Age: 63 Year
  Sex: Male

DRUGS (15)
  1. PLAVIX [Suspect]
     Dosage: 75 MG QD ORAL
     Route: 048
     Dates: start: 20040805, end: 20040903
  2. SULINDAC [Concomitant]
  3. LOSARTAN/HCTZ [Concomitant]
  4. DOXAZOSIN MESYLATE [Concomitant]
  5. TERBINAFINE HCL [Concomitant]
  6. DIPHENOXYLATE [Concomitant]
  7. FLUTICASONE PROPIONATE [Concomitant]
  8. CEFACLOR [Concomitant]
  9. ACETAMINOPHEN AND HYDROCODONE BITARTRATE [Concomitant]
  10. DIPHENHYDRAMINE HYDROCHLORIDE [Concomitant]
  11. KETOROLAC TROMETHAMINE [Concomitant]
  12. CIPROFLOXACIN [Concomitant]
  13. RANITIDINE HYDROCHLORIDE [Concomitant]
  14. ALBUTEROL [Concomitant]
  15. IPRATROPIUM BROMIDE [Concomitant]

REACTIONS (4)
  - ACUTE RESPIRATORY FAILURE [None]
  - DELIRIUM TREMENS [None]
  - RENAL FAILURE ACUTE [None]
  - THROMBOTIC THROMBOCYTOPENIC PURPURA [None]
